FAERS Safety Report 8537022 (Version 4)
Quarter: 2013Q2

REPORT INFORMATION
  Report Type: Spontaneous
  Country: US (occurrence: US)
  Receive Date: 20120430
  Receipt Date: 20130402
  Transmission Date: 20140414
  Serious: Yes (Hospitalization)
  Sender: FDA-Public Use
  Company Number: US-BAYER-2012-041579

PATIENT
  Age: 33 Year
  Sex: Female
  Weight: 93 kg

DRUGS (12)
  1. YAZ [Suspect]
     Indication: CONTRACEPTION
     Dosage: UNK
     Dates: start: 200612, end: 200710
  2. YAZ [Suspect]
     Indication: PREMENSTRUAL SYNDROME
  3. CALCIUM [Concomitant]
     Dosage: 1 DAILY
     Route: 048
  4. MULTIVITAMIN [Concomitant]
     Dosage: 1 DAILY
     Route: 048
  5. PREVACID [Concomitant]
     Dosage: AS NEEDED
  6. ALBUTEROL [Concomitant]
     Dosage: 90 MCG/24HR, EVERY 4-6 HRS AS NEEDED
     Dates: end: 20070515
  7. HYDROCODONE W/ACETAMINOPHEN [Concomitant]
     Dosage: 5-500 MG
     Dates: end: 20070515
  8. AMERGE [Concomitant]
     Dosage: 2.5 MG, UNK
     Dates: end: 20070515
  9. TOPAMAX [Concomitant]
     Dosage: 25 MG, BID
     Dates: end: 20070515
  10. MIDRIN [Concomitant]
     Dosage: 325-65-100 MG
     Dates: end: 20070515
  11. PATANOL [Concomitant]
     Dosage: 0.1%, TWICE DAILY AT 6 TO 8 HOURS
  12. CIPRO [Concomitant]

REACTIONS (6)
  - Cholecystitis acute [None]
  - Gallbladder injury [None]
  - Injury [None]
  - General physical health deterioration [None]
  - Emotional distress [None]
  - Pain [None]
